FAERS Safety Report 14346936 (Version 3)
Quarter: 2018Q1

REPORT INFORMATION
  Report Type: Spontaneous
  Country: US (occurrence: US)
  Receive Date: 20180103
  Receipt Date: 20180213
  Transmission Date: 20180509
  Serious: Yes (Hospitalization, Other)
  Sender: FDA-Public Use
  Company Number: US-009507513-1111USA01725

PATIENT
  Sex: Female
  Weight: 68.04 kg

DRUGS (3)
  1. FOSAMAX [Suspect]
     Active Substance: ALENDRONATE SODIUM
     Dosage: 10-70MG
     Route: 048
     Dates: start: 2007, end: 2008
  2. FOSAMAX [Suspect]
     Active Substance: ALENDRONATE SODIUM
     Indication: OSTEOPOROSIS
     Dosage: UNK
     Route: 048
     Dates: start: 2000, end: 20081216
  3. FOSAMAX PLUS D [Suspect]
     Active Substance: ALENDRONATE SODIUM\CHOLECALCIFEROL
     Indication: OSTEOPOROSIS
     Dosage: UNK
     Route: 048
     Dates: start: 200707, end: 200803

REACTIONS (16)
  - Femur fracture [Unknown]
  - Fall [Unknown]
  - Anaemia postoperative [Unknown]
  - Osteoarthritis [Unknown]
  - Transient global amnesia [Unknown]
  - Cholecystitis [Unknown]
  - Blood cholesterol increased [Unknown]
  - Foot fracture [Unknown]
  - Renal cyst [Unknown]
  - Ileus [Unknown]
  - Deep vein thrombosis [Unknown]
  - Fracture nonunion [Unknown]
  - Small intestinal obstruction [Unknown]
  - Hyperparathyroidism [Unknown]
  - Cholelithiasis [Unknown]
  - Device failure [Unknown]

NARRATIVE: CASE EVENT DATE: 2001
